FAERS Safety Report 7814972 (Version 1)
Quarter: 2020Q3

REPORT INFORMATION
  Report Type: Report from Study
  Country: US (occurrence: US)
  Receive Date: 20110216
  Receipt Date: 20110216
  Transmission Date: 20201104
  Serious: Yes (Hospitalization)
  Sender: FDA-Public Use
  Company Number: US-ROCHE-722209

PATIENT
  Age: 61 Year
  Sex: Male
  Weight: 73.5 kg

DRUGS (15)
  1. POTASSIUM CHLORIDE. [Concomitant]
     Active Substance: POTASSIUM CHLORIDE
     Dates: start: 200612, end: 20100710
  2. SEPTRA [Concomitant]
     Active Substance: SULFAMETHOXAZOLE\TRIMETHOPRIM
     Dosage: TDD; 1600/ 320 MG. DRUG REPORTED AS SEPTRA 800/160MG
     Dates: start: 20100701, end: 20100710
  3. NAPROXEN. [Suspect]
     Active Substance: NAPROXEN
     Indication: BACK PAIN
     Route: 065
     Dates: start: 20100701, end: 20100710
  4. ASPIRIN. [Suspect]
     Active Substance: ASPIRIN
     Route: 065
     Dates: start: 200810, end: 20100710
  5. RAMIPRIL. [Concomitant]
     Active Substance: RAMIPRIL
     Dates: start: 200612, end: 20100710
  6. FUROSEMIDE. [Concomitant]
     Active Substance: FUROSEMIDE
     Dates: start: 200612, end: 20100710
  7. SOMA [Concomitant]
     Active Substance: CARISOPRODOL
     Dates: start: 20100701, end: 20100710
  8. PEPCID [Concomitant]
     Active Substance: FAMOTIDINE
     Dosage: DRUG:PEPCID AC
     Dates: start: 200810, end: 20100710
  9. DALCETRAPIB. [Suspect]
     Active Substance: DALCETRAPIB
     Indication: CARDIOVASCULAR EVENT PROPHYLAXIS
     Dosage: DATE OF LAST DOSE PRIOR TO SAE: 01 JULY 2010
     Route: 048
     Dates: start: 20081218, end: 20100702
  10. DALCETRAPIB. [Suspect]
     Active Substance: DALCETRAPIB
     Route: 048
     Dates: start: 20100809
  11. CLOPIDOGREL [Suspect]
     Active Substance: CLOPIDOGREL BISULFATE
     Route: 065
     Dates: start: 200810, end: 20100710
  12. CARVEDILOL. [Concomitant]
     Active Substance: CARVEDILOL
     Dates: start: 200612, end: 20100710
  13. SIMVASTATIN. [Concomitant]
     Active Substance: SIMVASTATIN
     Dates: start: 20090324, end: 20100710
  14. SPIRONOLACTONE. [Concomitant]
     Active Substance: SPIRONOLACTONE
     Dates: start: 200612, end: 20100710
  15. DIGOXIN. [Concomitant]
     Active Substance: DIGOXIN
     Dates: start: 200612, end: 20100710

REACTIONS (1)
  - Gastrointestinal haemorrhage [Recovered/Resolved]

NARRATIVE: CASE EVENT DATE: 20100709
